FAERS Safety Report 23216861 (Version 3)
Quarter: 2024Q1

REPORT INFORMATION
  Report Type: Spontaneous
  Country: US (occurrence: US)
  Receive Date: 20231122
  Receipt Date: 20240131
  Transmission Date: 20240410
  Serious: No
  Sender: FDA-Public Use
  Company Number: US-GSKCCFUS-Case-01859240_AE-103824

PATIENT
  Sex: Female

DRUGS (1)
  1. ADVAIR DISKUS [Suspect]
     Active Substance: FLUTICASONE PROPIONATE\SALMETEROL XINAFOATE
     Indication: Product used for unknown indication
     Dosage: UNK, 500/50
     Route: 055

REACTIONS (2)
  - Product dose omission issue [Unknown]
  - Product complaint [Unknown]
